FAERS Safety Report 4421283-8 (Version None)
Quarter: 2004Q3

REPORT INFORMATION
  Report Type: 
  Country: None (occurrence: None)
  Receive Date: 20040804
  Receipt Date: 20040721
  Transmission Date: 20050211
  Serious: Yes (Hospitalization)
  Sender: FDA-Public Use
  Company Number: DSA_70355_2004

PATIENT

DRUGS (2)
  1. AZATHIOPRINE [Suspect]
     Indication: CROHN'S DISEASE
     Dosage: 100 MG DAILY PO
     Route: 048
  2. CORTICOSTEROIDS [Concomitant]

REACTIONS (3)
  - CANDIDIASIS [None]
  - PNEUMONIA [None]
  - SERRATIA INFECTION [None]
